FAERS Safety Report 11178287 (Version 1)
Quarter: 2015Q2

REPORT INFORMATION
  Report Type: Other
  Country: CA (occurrence: CA)
  Receive Date: 20150610
  Receipt Date: 20150610
  Transmission Date: 20150821
  Serious: Yes (Other)
  Sender: FDA-Public Use
  Company Number: CA-APOTEX-2015AP009744

PATIENT
  Age: 11 Year
  Sex: Male
  Weight: 56 kg

DRUGS (1)
  1. DESMOPRESSIN SPRAY [Suspect]
     Active Substance: DESMOPRESSIN
     Indication: DIABETES INSIPIDUS
     Dosage: 600 ?G, QD
     Route: 048

REACTIONS (5)
  - Fatigue [Unknown]
  - Drug ineffective [Unknown]
  - Product quality issue [Unknown]
  - Product substitution issue [Unknown]
  - Urine output increased [Unknown]
